FAERS Safety Report 5806235-5 (Version None)
Quarter: 2008Q3

REPORT INFORMATION
  Report Type: 
  Country: None (occurrence: None)
  Receive Date: 20080710
  Receipt Date: 20080702
  Transmission Date: 20090109
  Serious: Yes (Other)
  Sender: FDA-Public Use
  Company Number: MX-ASTRAZENECA-2008UW13624

PATIENT
  Age: 32 Year
  Sex: Male

DRUGS (1)
  1. NEXIUM [Suspect]
     Indication: GASTRIC HAEMORRHAGE
     Route: 042
     Dates: start: 20080627, end: 20080628

REACTIONS (1)
  - NEPHROTIC SYNDROME [None]
